FAERS Safety Report 25192935 (Version 1)
Quarter: 2025Q2

REPORT INFORMATION
  Report Type: Spontaneous
  Country: KR (occurrence: KR)
  Receive Date: 20250414
  Receipt Date: 20250414
  Transmission Date: 20250717
  Serious: Yes (Hospitalization, Other)
  Sender: SANOFI AVENTIS
  Company Number: KR-SA-2025SA104495

PATIENT
  Age: 83 Year
  Sex: Female
  Weight: 37.4 kg

DRUGS (2)
  1. ARAVA [Suspect]
     Active Substance: LEFLUNOMIDE
     Indication: Leukopenia
     Dosage: 1 DF, QD
     Dates: start: 20231227, end: 20231227
  2. METHOTREXATE [Suspect]
     Active Substance: METHOTREXATE
     Indication: Leukopenia
     Dosage: 5 DF, QD
     Dates: start: 20231227, end: 20231227

REACTIONS (2)
  - Leukopenia [Recovering/Resolving]
  - Thrombocytopenia [Recovering/Resolving]

NARRATIVE: CASE EVENT DATE: 20240223
